FAERS Safety Report 8760794 (Version 1)
Quarter: 2012Q4

REPORT INFORMATION
  Report Type: 
  Country: US (occurrence: US)
  Receive Date: 20120830
  Receipt Date: 20120830
  Transmission Date: 20130627
  Serious: No
  Sender: FDA-Public Use
  Company Number: US-BAYER-2012-089610

PATIENT
  Age: 49 Year
  Sex: Female
  Weight: 135 kg

DRUGS (10)
  1. BETASERON [Suspect]
     Dosage: 0.25 mg, QOD
     Route: 058
  2. CENTRUM [Concomitant]
  3. XANAX [Concomitant]
     Dosage: 2 mg, UNK
  4. PREMARIN [Concomitant]
     Dosage: 0.625 mg, UNK
  5. LAMICTAL [Concomitant]
     Dosage: 150 mg, UNK
  6. VITAMIN B1 [Concomitant]
     Dosage: 100 mg, UNK
  7. VITAMIN E [Concomitant]
     Dosage: 1000 u, UNK
  8. FISH OIL [Concomitant]
  9. ABILIFY [Concomitant]
     Dosage: 10 mg, UNK
  10. CALCIUM +VIT D [Concomitant]

REACTIONS (2)
  - Muscular weakness [None]
  - Hypoaesthesia [None]
